FAERS Safety Report 6673369-5 (Version None)
Quarter: 2010Q2

REPORT INFORMATION
  Report Type: 
  Country: None (occurrence: None)
  Receive Date: 20100408
  Receipt Date: 20100308
  Transmission Date: 20101027
  Serious: Yes (Hospitalization)
  Sender: FDA-Public Use
  Company Number: PHHY2010CN18239

PATIENT
  Age: 60 Year
  Sex: Male

DRUGS (3)
  1. CARBAMAZEPINE [Suspect]
     Indication: MENTAL DISORDER
     Dosage: 0.1 G, TID
     Route: 048
     Dates: start: 20070501, end: 20070525
  2. CARBAMAZEPINE [Suspect]
     Dosage: 0.6 G, UNK
     Route: 048
     Dates: start: 20070525, end: 20070528
  3. HALOPERIDOL [Concomitant]
     Dosage: 5 MG, BID
     Route: 030

REACTIONS (7)
  - CONDITION AGGRAVATED [None]
  - MENTAL DISORDER [None]
  - MOUTH HAEMORRHAGE [None]
  - PETECHIAE [None]
  - PURPURA [None]
  - THROMBOCYTOPENIA [None]
  - THROMBOCYTOPENIC PURPURA [None]
